FAERS Safety Report 16886373 (Version 1)
Quarter: 2019Q4

REPORT INFORMATION
  Report Type: Spontaneous
  Country: US (occurrence: US)
  Receive Date: 20191004
  Receipt Date: 20191004
  Transmission Date: 20200122
  Serious: Yes (Life-Threatening)
  Sender: FDA-Public Use
  Company Number: None

PATIENT
  Age: 65 Year
  Sex: Female
  Weight: 86 kg

DRUGS (10)
  1. MELATONIN [Concomitant]
     Active Substance: MELATONIN
  2. INSULIN ASPART [Concomitant]
     Active Substance: INSULIN ASPART
  3. FAMOTIDINE. [Concomitant]
     Active Substance: FAMOTIDINE
  4. TRAZODONE [Concomitant]
     Active Substance: TRAZODONE HYDROCHLORIDE
  5. INSULIN REGULAR [Concomitant]
     Active Substance: INSULIN NOS
  6. CEFTRIAXONE. [Suspect]
     Active Substance: CEFTRIAXONE
     Indication: URINARY TRACT INFECTION
     Dosage: ?          OTHER FREQUENCY:ONCE;?
     Route: 040
     Dates: start: 20190904, end: 20190904
  7. ALPRAZOLAM. [Concomitant]
     Active Substance: ALPRAZOLAM
  8. ONDANSETRON [Concomitant]
     Active Substance: ONDANSETRON
  9. ATORVASTATIN [Concomitant]
     Active Substance: ATORVASTATIN
  10. LEVOFLOXACIN. [Concomitant]
     Active Substance: LEVOFLOXACIN

REACTIONS (4)
  - Wheezing [None]
  - Depressed level of consciousness [None]
  - Injection site erythema [None]
  - Hypoxia [None]

NARRATIVE: CASE EVENT DATE: 20190904
